FAERS Safety Report 6860674-2 (Version None)
Quarter: 2010Q3

REPORT INFORMATION
  Report Type: 
  Country: None (occurrence: None)
  Receive Date: 20100719
  Receipt Date: 20100719
  Transmission Date: 20110219
  Serious: Yes (Death, Life-Threatening, Hospitalization, Disabling, Congenital Anomaly, Other)
  Sender: FDA-Public Use
  Company Number: None

PATIENT
  Age: 50 Year
  Sex: Female
  Weight: 92.9874 kg

DRUGS (2)
  1. LEXAPRO [Suspect]
     Indication: DEPRESSION
     Dosage: 20MG DAILY PO
     Route: 048
     Dates: start: 20080101, end: 20100716
  2. LEXAPRO [Suspect]
     Indication: PANIC ATTACK
     Dosage: 20MG DAILY PO
     Route: 048
     Dates: start: 20080101, end: 20100716

REACTIONS (5)
  - ANORGASMIA [None]
  - MARITAL PROBLEM [None]
  - MUSCLE TWITCHING [None]
  - PARANOIA [None]
  - THINKING ABNORMAL [None]
